FAERS Safety Report 15647214 (Version 1)
Quarter: 2018Q4

REPORT INFORMATION
  Report Type: Spontaneous
  Country: US (occurrence: US)
  Receive Date: 20181122
  Receipt Date: 20181122
  Transmission Date: 20190205
  Serious: Yes (Hospitalization, Other)
  Sender: FDA-Public Use
  Company Number: US-APOTEX-2018AP025177

PATIENT
  Age: 76 Year
  Sex: Male

DRUGS (1)
  1. FLECAINIDE [Suspect]
     Active Substance: FLECAINIDE
     Indication: PRODUCT USED FOR UNKNOWN INDICATION
     Dosage: UNK, UNKNOWN
     Route: 065

REACTIONS (7)
  - Toxicity to various agents [Recovering/Resolving]
  - Cardiotoxicity [Recovering/Resolving]
  - Arrhythmia [Recovering/Resolving]
  - Renal failure [Recovering/Resolving]
  - Cardiac failure [Recovering/Resolving]
  - Tachycardia [Recovering/Resolving]
  - Drug level above therapeutic [Unknown]
